FAERS Safety Report 7984434-4 (Version None)
Quarter: 2011Q4

REPORT INFORMATION
  Report Type: 
  Country: None (occurrence: None)
  Receive Date: 20111214
  Receipt Date: 20111205
  Transmission Date: 20120403
  Serious: Yes (Other)
  Sender: FDA-Public Use
  Company Number: DKLU1075297

PATIENT
  Age: 3 Year
  Sex: Female
  Weight: 10.5 kg

DRUGS (3)
  1. ONFI (CLOBAZAM) (CLOBAZAM) (TABLET) [Suspect]
     Indication: CONVULSION
     Dosage: 0.75 MG/KG MILLIGRAM(S)/KILOGRAM, 1 IN 1 D
  2. PHENOBARBITAL (PHENOBARBITAL) (INJECTION) [Suspect]
     Indication: CONVULSION
     Dosage: SEE IMAGE
  3. PHENYTOIN [Suspect]
     Indication: CONVULSION
     Dosage: SEE IMAGE
     Route: 042

REACTIONS (2)
  - CHOREA [None]
  - CONVULSION [None]
